FAERS Safety Report 4591503-8 (Version None)
Quarter: 2005Q1

REPORT INFORMATION
  Report Type: 
  Country: None (occurrence: None)
  Receive Date: 20050222
  Receipt Date: 20050207
  Transmission Date: 20050727
  Serious: Yes (Death)
  Sender: FDA-Public Use
  Company Number: 2005026737

PATIENT
  Age: 42 Year
  Sex: Male

DRUGS (2)
  1. SERTRALINE HCL [Suspect]
     Indication: MAJOR DEPRESSION
  2. DIPHENHYDRAMINE (DIPHENHYDRAMINE) [Suspect]
     Indication: ILL-DEFINED DISORDER

REACTIONS (2)
  - COMPLETED SUICIDE [None]
  - DRUG ABUSER [None]
